FAERS Safety Report 12882254 (Version 8)
Quarter: 2017Q1

REPORT INFORMATION
  Report Type: Spontaneous
  Country: JP (occurrence: JP)
  Receive Date: 20161025
  Receipt Date: 20170306
  Transmission Date: 20170428
  Serious: Yes (Other)
  Sender: FDA-Public Use
  Company Number: PHJP2016JP030140

PATIENT
  Age: 14 Year
  Sex: Male

DRUGS (2)
  1. IMUSERA [Suspect]
     Active Substance: FINGOLIMOD HYDROCHLORIDE
     Indication: MULTIPLE SCLEROSIS
     Dosage: 0.5 MG, UNK
     Route: 048
  2. CICLOSPORIN [Suspect]
     Active Substance: CYCLOSPORINE
     Indication: IMMUNE THROMBOCYTOPENIC PURPURA
     Dosage: UNK
     Route: 048

REACTIONS (8)
  - White blood cell count decreased [Unknown]
  - Headache [Unknown]
  - Multiple sclerosis [Recovered/Resolved]
  - Paraesthesia [Unknown]
  - Product use issue [Unknown]
  - Multiple sclerosis relapse [Recovered/Resolved]
  - Drug administered to patient of inappropriate age [Unknown]
  - Sensory disturbance [Unknown]
